FAERS Safety Report 19993740 (Version 1)
Quarter: 2021Q4

REPORT INFORMATION
  Report Type: Spontaneous
  Country: US (occurrence: US)
  Receive Date: 20211025
  Receipt Date: 20211025
  Transmission Date: 20220303
  Serious: Yes (Life-Threatening, Hospitalization, Other)
  Sender: FDA-Public Use
  Company Number: US-ORGANON-O2110USA002011

PATIENT
  Sex: Female

DRUGS (2)
  1. VYTORIN [Suspect]
     Active Substance: EZETIMIBE\SIMVASTATIN
     Dosage: UNK
  2. INFLUENZA VIRUS VACCINE [Suspect]
     Active Substance: INFLUENZA VIRUS VACCINE
     Dosage: UNK

REACTIONS (14)
  - Vascular graft [Unknown]
  - Myocardial infarction [Unknown]
  - Cardiac failure [Unknown]
  - Cardiac resynchronisation therapy [Unknown]
  - Nasopharyngitis [Unknown]
  - Diabetes mellitus [Unknown]
  - Sedation [Unknown]
  - Aortic valve disease [Unknown]
  - Illness [Unknown]
  - Hair colour changes [Unknown]
  - Hypertension [Unknown]
  - Weight decreased [Unknown]
  - Malaise [Unknown]
  - Amnesia [Unknown]
